FAERS Safety Report 5692027-7 (Version None)
Quarter: 2008Q2

REPORT INFORMATION
  Report Type: 
  Country: None (occurrence: None)
  Receive Date: 20080402
  Receipt Date: 20080324
  Transmission Date: 20081010
  Serious: Yes (Other)
  Sender: FDA-Public Use
  Company Number: US-MERCK-0803USA00171

PATIENT
  Age: 53 Year
  Sex: Female
  Weight: 53 kg

DRUGS (6)
  1. ZETIA [Suspect]
     Indication: HYPERLIPIDAEMIA
     Route: 048
     Dates: start: 20040101, end: 20080226
  2. PREMARIN [Concomitant]
     Route: 065
  3. ALLEGRA-D 12 HOUR [Concomitant]
     Route: 065
  4. ASPIRIN [Concomitant]
     Route: 065
  5. NEXIUM [Concomitant]
     Route: 048
  6. ACTONEL [Concomitant]
     Route: 065

REACTIONS (3)
  - ANAPHYLACTIC REACTION [None]
  - ANGIOEDEMA [None]
  - LIP SWELLING [None]
